FAERS Safety Report 17982939 (Version 3)
Quarter: 2022Q3

REPORT INFORMATION
  Report Type: Spontaneous
  Country: DE (occurrence: DE)
  Receive Date: 20200706
  Receipt Date: 20220719
  Transmission Date: 20221026
  Serious: Yes (Hospitalization)
  Sender: FDA-Public Use
  Company Number: DE-ACCORD-186259

PATIENT
  Age: 61 Year
  Sex: Female
  Weight: 90 kg

DRUGS (18)
  1. DOXAZOSIN MESYLATE [Interacting]
     Active Substance: DOXAZOSIN MESYLATE
     Indication: Hypertension
     Dosage: 16 MG, DAILY ON DAY 1-11
  2. AMLODIPINE BESYLATE [Interacting]
     Active Substance: AMLODIPINE BESYLATE
     Indication: Hypertension
     Dosage: 10 MG, DAILY ON DAY 1-11
  3. BISOPROLOL [Interacting]
     Active Substance: BISOPROLOL
     Indication: Hypertension
     Dosage: 10 MG, DAILY ON DAY 1-11
  4. URAPIDIL [Interacting]
     Active Substance: URAPIDIL
     Indication: Hypertension
     Dosage: 520 MG ON DAY 1
  5. URAPIDIL [Interacting]
     Active Substance: URAPIDIL
     Dosage: 530 MG ON DAY 2
  6. URAPIDIL [Interacting]
     Active Substance: URAPIDIL
     Dosage: 610 MG ON DAY 3
  7. URAPIDIL [Interacting]
     Active Substance: URAPIDIL
     Dosage: 860 MG ON DAY 4
  8. URAPIDIL [Interacting]
     Active Substance: URAPIDIL
     Dosage: 940 MG ON DAY 5 AND 6
  9. URAPIDIL [Interacting]
     Active Substance: URAPIDIL
     Dosage: 790 MG ON DAY 7
  10. URAPIDIL [Interacting]
     Active Substance: URAPIDIL
     Dosage: 670 MG ON DAY 8
  11. URAPIDIL [Interacting]
     Active Substance: URAPIDIL
     Dosage: 620 MG ON DAY 9
  12. URAPIDIL [Interacting]
     Active Substance: URAPIDIL
     Dosage: 200 MG ON DAY 10
  13. URAPIDIL [Interacting]
     Active Substance: URAPIDIL
     Dosage: 190 MG ON DAY 11
  14. CHLORTHALIDONE [Interacting]
     Active Substance: CHLORTHALIDONE
     Indication: Hypertension
     Dosage: 25 MG, DAILY ON DAY 1-11
  15. VALSARTAN [Interacting]
     Active Substance: VALSARTAN
     Indication: Hypertension
     Dosage: 320 MG, DAILY ON DAY 1-11
  16. CLONIDINE [Interacting]
     Active Substance: CLONIDINE
     Indication: Hypertension
     Dosage: 475 UG, DAILY ON DAY 1-11
  17. RIFAMPIN [Interacting]
     Active Substance: RIFAMPIN
     Indication: Anti-infective therapy
     Dosage: UNK
  18. RIFAMPIN [Interacting]
     Active Substance: RIFAMPIN
     Indication: Device related infection

REACTIONS (2)
  - Drug interaction [Unknown]
  - Blood pressure increased [Recovered/Resolved]
